FAERS Safety Report 6155028-0 (Version None)
Quarter: 2009Q2

REPORT INFORMATION
  Report Type: 
  Country: None (occurrence: None)
  Receive Date: 20090410
  Receipt Date: 20090403
  Transmission Date: 20091009
  Serious: Yes (Other)
  Sender: FDA-Public Use
  Company Number: 2009SP007256

PATIENT

DRUGS (1)
  1. TEMODAL [Suspect]

REACTIONS (1)
  - DEEP VEIN THROMBOSIS [None]
